FAERS Safety Report 6453371-9 (Version None)
Quarter: 2009Q4

REPORT INFORMATION
  Report Type: 
  Country: None (occurrence: None)
  Receive Date: 20091124
  Receipt Date: 20091116
  Transmission Date: 20100525
  Serious: No
  Sender: FDA-Public Use
  Company Number: CA-ROCHE-645291

PATIENT
  Age: 59 Year
  Sex: Male

DRUGS (2)
  1. TAMIFLU [Suspect]
     Indication: H1N1 INFLUENZA
     Dosage: DOSE: SMALLER THAN RECOMMENDED DOSE (NOT OTHERWISE SPECIFIED)
     Route: 065
     Dates: start: 20090101, end: 20090101
  2. PREDNISONE [Concomitant]

REACTIONS (1)
  - PATHOGEN RESISTANCE [None]
